FAERS Safety Report 17185591 (Version 1)
Quarter: 2019Q4

REPORT INFORMATION
  Report Type: Report from Study
  Country: AT (occurrence: AT)
  Receive Date: 20191220
  Receipt Date: 20191220
  Transmission Date: 20200122
  Serious: Yes (Hospitalization)
  Sender: FDA-Public Use
  Company Number: AT-MYLANLABS-2019M1125813

PATIENT
  Age: 78 Year
  Sex: Female
  Weight: 48 kg

DRUGS (19)
  1. PERTUZUMAB. [Suspect]
     Active Substance: PERTUZUMAB
     Indication: BREAST CANCER
     Dosage: 840 MILLIGRAM, 3XW (MOST RECENT DOSE PRIOR TO THE EVENT: 31/AUG/2018)
     Route: 042
     Dates: start: 20180810
  2. ABRAXANE [Suspect]
     Active Substance: PACLITAXEL
     Indication: BREAST CANCER
     Dosage: 142.11 MILLIGRAM, QW (MOST RECENT DOSE PRIOR TO THE EVENT: 19/OCT/2018)
     Route: 042
     Dates: start: 20180928
  3. PARKEMED [Concomitant]
     Active Substance: MEFENAMIC ACID
     Indication: OSTEONECROSIS OF JAW
     Dosage: UNK
     Route: 065
     Dates: start: 20180914
  4. TRASTUZUMAB. [Suspect]
     Active Substance: TRASTUZUMAB
     Indication: BREAST CANCER
     Dosage: 384 MILLIGRAM, 3XW (MOST RECENT DOSE PRIOR TO THE EVENT: 09/NOV/2018)
     Route: 041
     Dates: start: 20180810, end: 20180810
  5. TEMESTA                            /00273201/ [Concomitant]
     Active Substance: LORAZEPAM
     Dosage: UNK
     Route: 065
  6. ANTIFLAT [Concomitant]
     Dosage: UNK
     Route: 065
     Dates: start: 20181126
  7. XGEVA [Concomitant]
     Active Substance: DENOSUMAB
     Dosage: UNK
     Route: 065
     Dates: start: 20180817, end: 20190225
  8. FEMARA [Suspect]
     Active Substance: LETROZOLE
     Indication: BREAST CANCER
     Dosage: 2.5 MILLIGRAM, QD (MOST RECENT DOSE ON 13/JUN/2019)
     Route: 048
     Dates: start: 20181029
  9. AMLODIPINE [Concomitant]
     Active Substance: AMLODIPINE BESYLATE
     Indication: HYPERTENSION
     Dosage: UNK
     Route: 065
     Dates: start: 20180810
  10. PANTOLOC                           /01263201/ [Concomitant]
     Active Substance: PANTOPRAZOLE SODIUM
     Indication: ABDOMINAL PAIN UPPER
     Dosage: UNK
     Route: 065
     Dates: start: 20181109
  11. CIPROXIN                           /00697201/ [Concomitant]
     Active Substance: CIPROFLOXACIN
     Indication: GASTROENTERITIS RADIATION
     Dosage: UNK
     Route: 065
     Dates: start: 20181118
  12. CAPHOSOL [Concomitant]
     Active Substance: CALCIUM CHLORIDE\SODIUM CHLORIDE\SODIUM PHOSPHATE, DIBASIC, ANHYDROUS\SODIUM PHOSPHATE, MONOBASIC, ANHYDROUS
     Indication: MUCOSAL INFLAMMATION
     Dosage: UNK
     Route: 065
     Dates: start: 20180921
  13. ZOFRAN [Concomitant]
     Active Substance: ONDANSETRON HYDROCHLORIDE
     Dosage: UNK
     Route: 065
     Dates: start: 20180907
  14. VITAMINS WITH MINERALS [Concomitant]
     Active Substance: MINERALS\VITAMINS
     Dosage: UNK
     Route: 065
     Dates: start: 20180817
  15. ENTEROBENE [Concomitant]
     Indication: DIARRHOEA
     Dosage: UNK
     Route: 065
     Dates: start: 20181127
  16. NOVALGIN (METAMIZOLE SODIUM) [Concomitant]
     Active Substance: METAMIZOLE SODIUM
     Dosage: UNK
     Route: 065
     Dates: start: 20181126
  17. PARKEMED [Concomitant]
     Active Substance: MEFENAMIC ACID
     Indication: ARTHRALGIA
     Dosage: UNK
     Route: 065
     Dates: start: 20190315, end: 20190408
  18. PARKEMED [Concomitant]
     Active Substance: MEFENAMIC ACID
     Dosage: UNK
     Route: 065
  19. TRITTICO [Concomitant]
     Active Substance: TRAZODONE HYDROCHLORIDE
     Dosage: UNK
     Route: 065

REACTIONS (1)
  - Osteonecrosis of jaw [Not Recovered/Not Resolved]

NARRATIVE: CASE EVENT DATE: 20190225
